FAERS Safety Report 10529263 (Version 2)
Quarter: 2014Q4

REPORT INFORMATION
  Report Type: Spontaneous
  Country: LV (occurrence: LV)
  Receive Date: 20141020
  Receipt Date: 20141020
  Transmission Date: 20150528
  Serious: Yes (Other)
  Sender: FDA-Public Use
  Company Number: LV-ROCHE-1466972

PATIENT
  Age: 40 Year
  Sex: Female
  Weight: 65 kg

DRUGS (2)
  1. ROACTEMRA [Suspect]
     Active Substance: TOCILIZUMAB
     Indication: RHEUMATOID ARTHRITIS
     Route: 042
     Dates: start: 20140423, end: 20140909
  2. ROACTEMRA [Suspect]
     Active Substance: TOCILIZUMAB
     Route: 065

REACTIONS (4)
  - Joint stiffness [Unknown]
  - Arthralgia [Unknown]
  - Psoriasis [Unknown]
  - Joint swelling [Unknown]
